FAERS Safety Report 25036098 (Version 2)
Quarter: 2025Q1

REPORT INFORMATION
  Report Type: Spontaneous
  Country: BA (occurrence: BA)
  Receive Date: 20250304
  Receipt Date: 20250317
  Transmission Date: 20250408
  Serious: Yes (Other)
  Sender: BAYER HEALTHCARE PHARMACEUTICALS INC.
  Company Number: BA-BAYER-2025A026587

PATIENT
  Sex: Male

DRUGS (2)
  1. KERENDIA [Suspect]
     Active Substance: FINERENONE
     Indication: Chronic kidney disease
     Route: 048
  2. KERENDIA [Suspect]
     Active Substance: FINERENONE
     Indication: Type 2 diabetes mellitus

REACTIONS (3)
  - Haemorrhage [None]
  - Blood creatinine increased [None]
  - Feeding disorder [None]
